FAERS Safety Report 7927572-4 (Version None)
Quarter: 2011Q4

REPORT INFORMATION
  Report Type: 
  Country: None (occurrence: None)
  Receive Date: 20111118
  Receipt Date: 20111107
  Transmission Date: 20120403
  Serious: Yes (Life-Threatening, Other)
  Sender: FDA-Public Use
  Company Number: US-ROCHE-1011635

PATIENT
  Sex: Female

DRUGS (5)
  1. HERCEPTIN [Suspect]
     Indication: BREAST CANCER METASTATIC
     Dosage: 4 MG/KG LOADING DOSE ON WEEK 1 FOLLOWED BY 2 MG/KG WEEKLY WEEKS 2-10
     Route: 042
     Dates: start: 20000816
  2. PACLITAXEL [Suspect]
     Indication: BREAST CANCER METASTATIC
     Route: 042
     Dates: start: 20000816
  3. CYCLOPHOSPHAMIDE [Suspect]
     Indication: BREAST CANCER METASTATIC
     Route: 042
     Dates: start: 20000816
  4. DOXORUBICIN HCL [Suspect]
     Indication: BREAST CANCER METASTATIC
     Route: 042
     Dates: start: 20000816
  5. IXABEPILONE [Suspect]
     Indication: BREAST CANCER METASTATIC

REACTIONS (3)
  - EMBOLISM [None]
  - LEFT VENTRICULAR DYSFUNCTION [None]
  - VENTRICULAR ARRHYTHMIA [None]
